FAERS Safety Report 14854094 (Version 1)
Quarter: 2018Q2

REPORT INFORMATION
  Report Type: Spontaneous
  Country: CH (occurrence: CH)
  Receive Date: 20180507
  Receipt Date: 20180507
  Transmission Date: 20180711
  Serious: Yes (Hospitalization)
  Sender: FDA-Public Use
  Company Number: CH-TEVA-2018-CH-890146

PATIENT
  Age: 80 Year
  Sex: Male
  Weight: 75.4 kg

DRUGS (12)
  1. ENALAPRIL MEPHA [Suspect]
     Active Substance: ENALAPRIL
     Dosage: 20 MILLIGRAM DAILY;
     Route: 048
     Dates: end: 20180329
  2. SIMVASTATIN MEPHA [Concomitant]
     Active Substance: SIMVASTATIN
     Dosage: 20 MILLIGRAM DAILY;
     Route: 048
  3. INDERAL [Suspect]
     Active Substance: PROPRANOLOL HYDROCHLORIDE
     Dosage: 40 MILLIGRAM DAILY;
     Route: 048
     Dates: end: 20180329
  4. TOLVON 30 MG TABLETTEN [Concomitant]
     Dosage: 30 MILLIGRAM DAILY;
     Route: 048
  5. STILNOX COMPRIMES PELLICULES SECABLES [Concomitant]
     Dosage: 10 MILLIGRAM DAILY;
     Route: 048
  6. LYRICA [Concomitant]
     Active Substance: PREGABALIN
     Dosage: 225 MILLIGRAM DAILY;
     Route: 048
  7. ARTHROTEC [Suspect]
     Active Substance: DICLOFENAC SODIUM\MISOPROSTOL
     Route: 048
     Dates: end: 20180329
  8. BACTRIM [Suspect]
     Active Substance: SULFAMETHOXAZOLE\TRIMETHOPRIM
     Route: 048
     Dates: start: 20180327, end: 20180329
  9. XANAX RETARD 0,5 MG TABLETTEN [Concomitant]
     Dosage: .5 MILLIGRAM DAILY;
     Route: 048
  10. QUETIAPIN SANDOZ [Concomitant]
     Active Substance: QUETIAPINE
     Dosage: 25 MILLIGRAM DAILY;
     Route: 048
  11. ASPIRIN CARDIO 100 FILMTABLETTEN [Concomitant]
     Active Substance: ASPIRIN
     Dosage: 100 MILLIGRAM DAILY;
     Route: 048
  12. PANTOZOL [Concomitant]
     Active Substance: PANTOPRAZOLE SODIUM
     Dosage: 40 MILLIGRAM DAILY;
     Route: 048

REACTIONS (8)
  - Fall [None]
  - Fatigue [None]
  - Hypotension [Recovered/Resolved]
  - Acute kidney injury [Recovered/Resolved]
  - Vomiting [None]
  - Gastroenteritis [None]
  - Nausea [None]
  - Prerenal failure [None]

NARRATIVE: CASE EVENT DATE: 201803
